FAERS Safety Report 12494383 (Version 1)
Quarter: 2016Q2

REPORT INFORMATION
  Report Type: Report from Study
  Country: VE (occurrence: VE)
  Receive Date: 20160623
  Receipt Date: 20160623
  Transmission Date: 20160815
  Serious: Yes (Hospitalization, Other)
  Sender: FDA-Public Use
  Company Number: PHHY2016VE085263

PATIENT
  Age: 61 Year
  Sex: Female

DRUGS (3)
  1. AROMASIN [Concomitant]
     Active Substance: EXEMESTANE
     Indication: PRODUCT USED FOR UNKNOWN INDICATION
     Dosage: 25 MG, QD
     Route: 065
  2. EUTHYROX [Concomitant]
     Active Substance: LEVOTHYROXINE SODIUM
     Indication: THYROID DISORDER
     Dosage: 100 MG, QD
     Route: 065
  3. AFINITOR [Suspect]
     Active Substance: EVEROLIMUS
     Indication: BREAST CANCER METASTATIC
     Dosage: 10 MG, QD
     Route: 048
     Dates: start: 201308

REACTIONS (22)
  - Second primary malignancy [Recovering/Resolving]
  - Nail growth abnormal [Recovering/Resolving]
  - Acne [Unknown]
  - Skin fragility [Recovering/Resolving]
  - Impaired healing [Unknown]
  - Skin haemorrhage [Unknown]
  - Basal cell carcinoma [Recovering/Resolving]
  - Muscle spasms [Recovering/Resolving]
  - Renal failure [Recovering/Resolving]
  - Blood uric acid increased [Unknown]
  - Blood cholesterol increased [Recovering/Resolving]
  - Blood pressure increased [Unknown]
  - Arrhythmia [Recovering/Resolving]
  - Neuropathy peripheral [Recovering/Resolving]
  - Blood glucose increased [Recovering/Resolving]
  - Mouth ulceration [Recovering/Resolving]
  - Arthralgia [Recovering/Resolving]
  - Haemoglobin decreased [Recovering/Resolving]
  - White blood cell count decreased [Recovering/Resolving]
  - Blood parathyroid hormone increased [Recovering/Resolving]
  - Arthritis [Recovering/Resolving]
  - Herpes virus infection [Recovering/Resolving]

NARRATIVE: CASE EVENT DATE: 201510
